FAERS Safety Report 5526201-7 (Version None)
Quarter: 2007Q4

REPORT INFORMATION
  Report Type: 
  Country: None (occurrence: None)
  Receive Date: 20071127
  Receipt Date: 20071122
  Transmission Date: 20080405
  Serious: Yes (Death, Life-Threatening, Hospitalization, Other)
  Sender: FDA-Public Use
  Company Number: PHFR2007GB02037

PATIENT
  Age: 16 Year
  Sex: Female
  Weight: 106 kg

DRUGS (12)
  1. TRAZODONE HCL [Concomitant]
     Indication: POST-TRAUMATIC STRESS DISORDER
     Dosage: 300 MG/DAY
     Route: 048
     Dates: start: 20061201, end: 20070801
  2. VALPROATE SODIUM [Concomitant]
     Indication: POST-TRAUMATIC STRESS DISORDER
     Dosage: 1200 MG/DAY
     Route: 048
     Dates: start: 20051201, end: 20070801
  3. OLANZAPINE [Concomitant]
     Indication: POST-TRAUMATIC STRESS DISORDER
     Dosage: 20 MG/DAY
     Route: 048
     Dates: start: 20051001, end: 20070801
  4. LORAZEPAM [Concomitant]
     Indication: POST-TRAUMATIC STRESS DISORDER
     Dosage: 4 MG, PRN
     Route: 048
     Dates: start: 20041001, end: 20070801
  5. IBUPROFEN [Concomitant]
     Dosage: UNK, PRN
     Route: 065
  6. CLOPIXOL /00876701/ [Concomitant]
     Indication: POST-TRAUMATIC STRESS DISORDER
     Dosage: 50 MG/DAY
     Route: 030
     Dates: start: 20070605, end: 20070605
  7. CLOPIXOL /00876701/ [Concomitant]
     Dosage: 75 MG/DAY
     Route: 030
     Dates: start: 20070620, end: 20070620
  8. AUGMENTIN /UNK/ [Concomitant]
     Route: 065
  9. CLOZARIL [Suspect]
     Indication: POST-TRAUMATIC STRESS DISORDER
     Dosage: 300 MG/DAY
     Route: 048
     Dates: start: 20070418, end: 20070512
  10. CLOZARIL [Suspect]
     Dosage: 275 MG/DAY
     Route: 048
     Dates: start: 20070607, end: 20070703
  11. MEBEVERINE [Concomitant]
     Indication: IRRITABLE BOWEL SYNDROME
     Dosage: 135 MG, TID
     Route: 048
     Dates: start: 20041201, end: 20070801
  12. CHLORPROMAZINE [Concomitant]
     Indication: POST-TRAUMATIC STRESS DISORDER
     Dosage: 200 MG, PRN
     Route: 048
     Dates: start: 20041001, end: 20070801

REACTIONS (14)
  - ABDOMINAL PAIN [None]
  - ANAEMIA HAEMOLYTIC AUTOIMMUNE [None]
  - CARDIO-RESPIRATORY ARREST [None]
  - CIRCULATORY COLLAPSE [None]
  - DEEP VEIN THROMBOSIS [None]
  - DYSPNOEA [None]
  - DYSURIA [None]
  - GENERAL PHYSICAL CONDITION [None]
  - HAEMOGLOBIN DECREASED [None]
  - PALLOR [None]
  - PLEURAL EFFUSION [None]
  - PULMONARY EMBOLISM [None]
  - TRANSFUSION [None]
  - WHITE BLOOD CELL COUNT INCREASED [None]
